FAERS Safety Report 13252603 (Version 1)
Quarter: 2017Q1

REPORT INFORMATION
  Report Type: Spontaneous
  Country: FR (occurrence: FR)
  Receive Date: 20170220
  Receipt Date: 20170220
  Transmission Date: 20170428
  Serious: Yes (Hospitalization, Other)
  Sender: FDA-Public Use
  Company Number: FR-BRISTOL-MYERS SQUIBB COMPANY-BMS-2017-010908

PATIENT
  Age: 58 Year
  Sex: Female

DRUGS (3)
  1. BICNU [Suspect]
     Active Substance: CARMUSTINE
     Indication: B-CELL LYMPHOMA
     Dosage: 420 MG, UNK
     Route: 042
     Dates: start: 20160412
  2. ETOPOPHOS [Suspect]
     Active Substance: ETOPOSIDE PHOSPHATE
     Indication: B-CELL LYMPHOMA
     Dosage: 280 MG, QD
     Route: 042
     Dates: start: 20160413, end: 20160415
  3. CYTARABINE ACCORD [Suspect]
     Active Substance: CYTARABINE
     Indication: B-CELL LYMPHOMA
     Dosage: 280 MG, QD
     Route: 042
     Dates: start: 20160413, end: 20160415

REACTIONS (3)
  - Lung disorder [Recovered/Resolved]
  - Respiratory distress [Recovered/Resolved]
  - Bone marrow failure [Recovered/Resolved]

NARRATIVE: CASE EVENT DATE: 20160418
